FAERS Safety Report 6087920-X (Version None)
Quarter: 2009Q1

REPORT INFORMATION
  Report Type: 
  Country: None (occurrence: None)
  Receive Date: 20090218
  Receipt Date: 20090218
  Transmission Date: 20090719
  Serious: Yes (Hospitalization)
  Sender: FDA-Public Use
  Company Number: None

PATIENT
  Age: 10 Year
  Sex: Female
  Weight: 36.1 kg

DRUGS (1)
  1. INFLIXIMAB 100 MG/ML CENTOCOR [Suspect]
     Indication: CROHN'S DISEASE
     Dosage: 180 MG ONCE IV
     Route: 042
     Dates: start: 20081016, end: 20081016

REACTIONS (3)
  - EYE PAIN [None]
  - HEADACHE [None]
  - INFUSION RELATED REACTION [None]
